FAERS Safety Report 4477034-4 (Version None)
Quarter: 2004Q4

REPORT INFORMATION
  Report Type: 
  Country: None (occurrence: None)
  Receive Date: 20041018
  Receipt Date: 20041012
  Transmission Date: 20050328
  Serious: Yes (Other)
  Sender: FDA-Public Use
  Company Number: PHRM2004FR03084

PATIENT
  Age: 45 Year
  Sex: Male

DRUGS (3)
  1. LAMISIL [Suspect]
     Indication: NAIL TINEA
     Route: 048
  2. CELECTOL [Concomitant]
     Route: 048
  3. ALDACTAZINE [Concomitant]
     Route: 048

REACTIONS (5)
  - BLISTER [None]
  - LOCALISED INFECTION [None]
  - LYMPHADENOPATHY [None]
  - PYREXIA [None]
  - SKIN LESION [None]
